FAERS Safety Report 5651087-X (Version None)
Quarter: 2008Q1

REPORT INFORMATION
  Report Type: 
  Country: None (occurrence: None)
  Receive Date: 20080305
  Receipt Date: 20080228
  Transmission Date: 20080703
  Serious: Yes (Death)
  Sender: FDA-Public Use
  Company Number: IN-BRISTOL-MYERS SQUIBB COMPANY-14095517

PATIENT
  Age: 57 Year
  Sex: Male

DRUGS (3)
  1. BARACLUDE [Suspect]
     Route: 048
     Dates: start: 20080129, end: 20080205
  2. LAMIVUDINE [Concomitant]
  3. CHEMOTHERAPY [Concomitant]

REACTIONS (3)
  - MALIGNANT NEOPLASM PROGRESSION [None]
  - PROSTATE CANCER [None]
  - RENAL DISORDER [None]
